FAERS Safety Report 6171339-7 (Version None)
Quarter: 2009Q2

REPORT INFORMATION
  Report Type: 
  Country: None (occurrence: None)
  Receive Date: 20090427
  Receipt Date: 20090415
  Transmission Date: 20091009
  Serious: Yes (Disabling)
  Sender: FDA-Public Use
  Company Number: 2009AP001538

PATIENT
  Sex: Female

DRUGS (17)
  1. ALENDRONATE SODIUM [Suspect]
     Indication: OSTEOPOROSIS
     Dosage: 70 MG;PO
     Route: 048
     Dates: start: 20060201, end: 20090301
  2. AMITRIPTYLINE HYDROCHLORIDE [Concomitant]
  3. CALCIUM CARBONATE (CALCIUM CARBONATE) [Concomitant]
  4. COLECALCIFEROL (COLECALCIFEROL) [Concomitant]
  5. VITAMIN D [Concomitant]
  6. ENALAPRIL MALEATE [Concomitant]
  7. FUROSEMIDE [Concomitant]
  8. LEVOTHYROXINE SODIUM [Concomitant]
  9. MORPHINE SULFATE INJ [Concomitant]
  10. ACETAMINOPHEN [Concomitant]
  11. ALGINIC ACID (ALGINIC ACID) [Concomitant]
  12. ALUMINIUM HYDROXIDE GEL, DRIED (ALUMINIUM HYDROXIDE GEL, DRIED) [Concomitant]
  13. MAGNESIUM TRISILICATE (MAGNESIUM TRISILICATE) [Concomitant]
  14. SODIUM BICARBONATE IN PLASTIC CONTAINER [Concomitant]
  15. QUININE SULFATE (QUININE SULFATE) [Concomitant]
  16. SALBUTAMOL (SALBUTAMOL) [Concomitant]
  17. TRAMADOL HCL [Concomitant]

REACTIONS (6)
  - CARPAL TUNNEL DECOMPRESSION [None]
  - FEMUR FRACTURE [None]
  - OSTEOARTHRITIS [None]
  - OSTEOPOROTIC FRACTURE [None]
  - STRESS FRACTURE [None]
  - WRIST FRACTURE [None]
